FAERS Safety Report 16403966 (Version 1)
Quarter: 2019Q2

REPORT INFORMATION
  Report Type: Spontaneous
  Country: NL (occurrence: NL)
  Receive Date: 20190607
  Receipt Date: 20190607
  Transmission Date: 20190711
  Serious: Yes (Death, Life-Threatening, Hospitalization, Other)
  Sender: FDA-Public Use
  Company Number: PHHY2019NL128620

PATIENT
  Age: 52 Year
  Sex: Female

DRUGS (2)
  1. ATORVASTATIN [Concomitant]
     Active Substance: ATORVASTATIN
     Indication: HYPERCHOLESTEROLAEMIA
     Dosage: 40 MG, UNK
     Route: 048
  2. EZETIMIBE. [Suspect]
     Active Substance: EZETIMIBE
     Indication: PRODUCT USED FOR UNKNOWN INDICATION
     Dosage: 10 MG, UNK
     Route: 048

REACTIONS (5)
  - Cholestasis [Fatal]
  - Biliary fibrosis [Fatal]
  - Vanishing bile duct syndrome [Fatal]
  - Infection [Fatal]
  - Hepatic cirrhosis [Fatal]

NARRATIVE: CASE EVENT DATE: 200409
